FAERS Safety Report 15350436 (Version 2)
Quarter: 2018Q3

REPORT INFORMATION
  Report Type: Report from Study
  Country: US (occurrence: US)
  Receive Date: 20180905
  Receipt Date: 20180912
  Transmission Date: 20181010
  Serious: Yes (Other)
  Sender: FDA-Public Use
  Company Number: US-ROCHE-2178748

PATIENT

DRUGS (2)
  1. ALTEPLASE. [Suspect]
     Active Substance: ALTEPLASE
     Indication: PRODUCT USED FOR UNKNOWN INDICATION
     Dosage: 5 MG FOLLOWED BY INFUSION AT A RATE OF 2 MG/ H FOR 4 H THEN 1 MG/ H FOR THE REMAINING TIME
     Route: 065
  2. HEPARIN [Concomitant]
     Active Substance: HEPARIN SODIUM
     Route: 040

REACTIONS (3)
  - Off label use [Unknown]
  - Pulmonary hypertension [Not Recovered/Not Resolved]
  - Intentional product use issue [Unknown]
